FAERS Safety Report 6060363-0 (Version None)
Quarter: 2009Q1

REPORT INFORMATION
  Report Type: 
  Country: None (occurrence: None)
  Receive Date: 20090130
  Receipt Date: 20090130
  Transmission Date: 20090719
  Serious: Yes (Other)
  Sender: FDA-Public Use
  Company Number: None

PATIENT
  Age: 58 Year
  Sex: Female
  Weight: 68.0396 kg

DRUGS (2)
  1. LEVAQUIN [Suspect]
     Indication: EAR INFECTION
     Dosage: 1 TABLE PER DAY PO
     Route: 048
     Dates: start: 20090120, end: 20090127
  2. LEVAQUIN [Suspect]
     Indication: SINUSITIS
     Dosage: 1 TABLE PER DAY PO
     Route: 048
     Dates: start: 20090120, end: 20090127

REACTIONS (8)
  - ARTHRALGIA [None]
  - GAIT DISTURBANCE [None]
  - MOVEMENT DISORDER [None]
  - MYALGIA [None]
  - OEDEMA PERIPHERAL [None]
  - PAIN [None]
  - PAIN IN EXTREMITY [None]
  - VAGINAL INFECTION [None]
